FAERS Safety Report 6141570-5 (Version None)
Quarter: 2009Q2

REPORT INFORMATION
  Report Type: 
  Country: None (occurrence: None)
  Receive Date: 20090402
  Receipt Date: 20090324
  Transmission Date: 20091009
  Serious: Yes (Other)
  Sender: FDA-Public Use
  Company Number: A0765504A

PATIENT
  Age: 47 Year
  Sex: Female
  Weight: 53.6 kg

DRUGS (3)
  1. WELLBUTRIN XL [Suspect]
     Indication: DEPRESSION
     Dosage: 300MG UNKNOWN
     Route: 048
     Dates: start: 20080901, end: 20081204
  2. CYMBALTA [Suspect]
     Indication: DEPRESSION
     Route: 048
  3. ADDERALL 10 [Concomitant]
     Indication: DEPRESSION

REACTIONS (3)
  - CHROMATURIA [None]
  - HEPATIC ENZYME INCREASED [None]
  - NAUSEA [None]
